FAERS Safety Report 20418263 (Version 4)
Quarter: 2022Q1

REPORT INFORMATION
  Report Type: Report from Study
  Country: FR (occurrence: FR)
  Receive Date: 20220202
  Receipt Date: 20220310
  Transmission Date: 20220423
  Serious: Yes (Death, Other)
  Sender: FDA-Public Use
  Company Number: FR-GILEAD-2022-0565839

PATIENT
  Sex: Female
  Weight: 54 kg

DRUGS (2)
  1. SACITUZUMAB GOVITECAN [Suspect]
     Active Substance: SACITUZUMAB GOVITECAN
     Indication: Triple negative breast cancer
     Dosage: 10 MG/KG, CYCLE 1 D1,D8
     Route: 065
     Dates: start: 20211130
  2. SACITUZUMAB GOVITECAN [Suspect]
     Active Substance: SACITUZUMAB GOVITECAN
     Dosage: UNK
     Route: 065
     Dates: end: 20220112

REACTIONS (2)
  - Death [Fatal]
  - Neoplasm progression [Not Recovered/Not Resolved]
